FAERS Safety Report 9470594 (Version 1)
Quarter: 2013Q3

REPORT INFORMATION
  Report Type: Spontaneous
  Country: BR (occurrence: BR)
  Receive Date: 20130822
  Receipt Date: 20130822
  Transmission Date: 20140515
  Serious: Yes (Other)
  Sender: FDA-Public Use
  Company Number: BR-JNJFOC-20130809179

PATIENT
  Sex: 0

DRUGS (2)
  1. REMICADE [Suspect]
     Indication: CHOROIDAL NEOVASCULARISATION
     Route: 042
  2. AVASTIN [Suspect]
     Indication: CHOROIDAL NEOVASCULARISATION
     Route: 065

REACTIONS (3)
  - Vitritis [Unknown]
  - Vasculitis [Unknown]
  - Off label use [Unknown]
